FAERS Safety Report 14609935 (Version 1)
Quarter: 2018Q1

REPORT INFORMATION
  Report Type: Spontaneous
  Country: FR (occurrence: FR)
  Receive Date: 20180307
  Receipt Date: 20180307
  Transmission Date: 20180509
  Serious: Yes (Other)
  Sender: FDA-Public Use
  Company Number: FR-LPDUSPRD-20180271

PATIENT
  Age: 46 Year
  Sex: Male

DRUGS (1)
  1. VENOFER [Suspect]
     Active Substance: IRON SUCROSE
     Dosage: 240 MG, 1 TOTAL
     Route: 041
     Dates: start: 20180123, end: 20180123

REACTIONS (2)
  - Face oedema [Unknown]
  - Cardiac failure [Unknown]

NARRATIVE: CASE EVENT DATE: 20180123
